FAERS Safety Report 4479241-3 (Version None)
Quarter: 2004Q4

REPORT INFORMATION
  Report Type: 
  Country: None (occurrence: None)
  Receive Date: 20041019
  Receipt Date: 20041019
  Transmission Date: 20050328
  Serious: Yes (Hospitalization)
  Sender: FDA-Public Use
  Company Number: None

PATIENT
  Age: 33 Year
  Sex: Female
  Weight: 69 kg

DRUGS (6)
  1. VANCOMYCIN [Suspect]
     Indication: STAPHYLOCOCCAL SEPSIS
     Dosage: 1GM  Q12H  INTRAVENOUS
     Route: 042
     Dates: start: 20040304, end: 20040312
  2. WARFARIN SODIUM [Suspect]
     Indication: PHLEBOTHROMBOSIS
     Dosage: 10MG  DAILY  ORAL
     Route: 048
     Dates: start: 20040101, end: 20040312
  3. PROMETHAZINE [Concomitant]
  4. DIPHENHYDRAMINE HCL [Concomitant]
  5. DILAUDID [Concomitant]
  6. FOLIC ACID [Concomitant]

REACTIONS (7)
  - BACTERAEMIA [None]
  - COAGULOPATHY [None]
  - DEHYDRATION [None]
  - INTERNATIONAL NORMALISED RATIO INCREASED [None]
  - RENAL FAILURE ACUTE [None]
  - SICKLE CELL ANAEMIA WITH CRISIS [None]
  - STAPHYLOCOCCAL INFECTION [None]
